FAERS Safety Report 24097097 (Version 2)
Quarter: 2024Q3

REPORT INFORMATION
  Report Type: Spontaneous
  Country: US (occurrence: US)
  Receive Date: 20240716
  Receipt Date: 20240812
  Transmission Date: 20241017
  Serious: Yes (Other)
  Sender: JAZZ
  Company Number: US-JAZZ PHARMACEUTICALS-2024-US-010589

PATIENT
  Age: 34 Year
  Sex: Female

DRUGS (1)
  1. XYWAV [Suspect]
     Active Substance: CALCIUM OXYBATE\MAGNESIUM OXYBATE\POTASSIUM OXYBATE\SODIUM OXYBATE
     Indication: Product used for unknown indication
     Dosage: DOUBLE DOSE OF 4.25 TWICE TOTAL 8.5

REACTIONS (5)
  - Depressed level of consciousness [Recovered/Resolved]
  - Extra dose administered [Unknown]
  - Nausea [Recovered/Resolved]
  - Somnolence [Unknown]
  - Feeling drunk [Unknown]
